FAERS Safety Report 5587728-5 (Version None)
Quarter: 2008Q1

REPORT INFORMATION
  Report Type: 
  Country: None (occurrence: None)
  Receive Date: 20080110
  Receipt Date: 20080104
  Transmission Date: 20080703
  Serious: Yes (Other)
  Sender: FDA-Public Use
  Company Number: IE-AVENTIS-200721735GDDC

PATIENT
  Sex: Male

DRUGS (1)
  1. GLYBURIDE [Suspect]

REACTIONS (2)
  - BRAIN INJURY [None]
  - MEDICATION ERROR [None]
